FAERS Safety Report 16181627 (Version 3)
Quarter: 2019Q2

REPORT INFORMATION
  Report Type: Spontaneous
  Country: FR (occurrence: FR)
  Receive Date: 20190410
  Receipt Date: 20190528
  Transmission Date: 20190711
  Serious: Yes (Hospitalization, Other)
  Sender: FDA-Public Use
  Company Number: FR-MYLANLABS-2019M1033046

PATIENT
  Age: 32 Year
  Sex: Female
  Weight: 47 kg

DRUGS (14)
  1. DUPIXENT [Suspect]
     Active Substance: DUPILUMAB
     Indication: DERMATITIS ATOPIC
     Dosage: 600 MILLIGRAM, TOTAL (600 MG,1X)
     Route: 058
     Dates: start: 20171120, end: 20171120
  2. DUPIXENT [Suspect]
     Active Substance: DUPILUMAB
     Dosage: 1 DOSAGE FORM, CYCLE
     Route: 058
     Dates: start: 20171120, end: 20180409
  3. MONURIL [Concomitant]
     Active Substance: FOSFOMYCIN TROMETHAMINE
     Indication: URINARY TRACT INFECTION
     Dosage: 1 DOSAGE FORM
     Route: 048
     Dates: start: 20180517
  4. NAABAK                             /01266803/ [Suspect]
     Active Substance: ISOSPAGLUMIC ACID
     Indication: CONJUNCTIVITIS
     Dosage: UNK
     Route: 047
     Dates: start: 2017
  5. FURADANTINE [Concomitant]
     Active Substance: NITROFURANTOIN
     Indication: URINARY TRACT INFECTION
     Dosage: 3 DOSAGE FORM, QD
     Route: 048
     Dates: start: 20180517, end: 20180522
  6. DUPIXENT [Suspect]
     Active Substance: DUPILUMAB
     Dosage: 300 MILLIGRAM, Q2W (300 MG,QOW)
     Route: 058
     Dates: start: 20180409, end: 20180409
  7. ZYRTEC [Suspect]
     Active Substance: CETIRIZINE HYDROCHLORIDE
     Indication: DERMATITIS ATOPIC
     Dosage: 1 DOSAGE FORM, QD
     Route: 048
     Dates: start: 2017
  8. DUPIXENT [Suspect]
     Active Substance: DUPILUMAB
     Dosage: 300 MILLIGRAM, Q2W (300 MG,QOW)
     Route: 058
     Dates: start: 20171204
  9. IBUPROFENE ZYDUS [Suspect]
     Active Substance: IBUPROFEN
     Indication: URINARY TRACT INFECTION
     Dosage: UNK
     Route: 048
     Dates: start: 20180517
  10. VALACICLOVIR [Suspect]
     Active Substance: VALACYCLOVIR HYDROCHLORIDE
     Indication: HERPES SIMPLEX
     Dosage: 1000 MILLIGRAM, QD
     Route: 048
     Dates: start: 2017
  11. VALACICLOVIR [Suspect]
     Active Substance: VALACYCLOVIR HYDROCHLORIDE
     Dosage: 500 MILLIGRAM, QD
     Route: 048
     Dates: start: 2017
  12. COMPLEMENT (NAPROXEN SODIUM) [Suspect]
     Active Substance: NAPROXEN SODIUM
     Indication: PRODUCT USED FOR UNKNOWN INDICATION
     Dosage: 2 DOSAGE FORM, QD
     Route: 048
     Dates: start: 20180516
  13. MONAZOL [Concomitant]
     Active Substance: SERTACONAZOLE NITRATE
     Indication: CANDIDA INFECTION
     Dosage: 1 DOSAGE FORM
     Route: 067
     Dates: start: 20180516, end: 20180516
  14. DUPIXENT [Suspect]
     Active Substance: DUPILUMAB
     Dosage: 300 MILLIGRAM, Q2W (300 MG,QOW)
     Route: 058
     Dates: start: 20180326

REACTIONS (3)
  - Maternal exposure before pregnancy [Recovered/Resolved]
  - Maternal exposure during pregnancy [Recovered/Resolved]
  - Abortion spontaneous [Recovered/Resolved]

NARRATIVE: CASE EVENT DATE: 20171120
